FAERS Safety Report 19979837 (Version 1)
Quarter: 2021Q4

REPORT INFORMATION
  Report Type: Spontaneous
  Country: FR (occurrence: FR)
  Receive Date: 20211021
  Receipt Date: 20211021
  Transmission Date: 20220303
  Serious: Yes (Congenital Anomaly, Other)
  Sender: FDA-Public Use
  Company Number: FR-ABBVIE-21K-056-4125441-00

PATIENT
  Sex: Female

DRUGS (2)
  1. VALPROATE SODIUM [Suspect]
     Active Substance: VALPROATE SODIUM
     Indication: Maternal exposure timing unspecified
     Route: 064
  2. FOLIC ACID [Suspect]
     Active Substance: FOLIC ACID
     Indication: Maternal exposure timing unspecified
     Route: 064

REACTIONS (36)
  - Meconium in amniotic fluid [Unknown]
  - Cholesteatoma [Unknown]
  - Dyslexia [Unknown]
  - Dysmorphism [Unknown]
  - Psychomotor skills impaired [Unknown]
  - Deafness congenital [Unknown]
  - Emotional disorder [Unknown]
  - Hypoacusis [Unknown]
  - Cognitive disorder [Unknown]
  - Aphasia [Unknown]
  - Scoliosis [Unknown]
  - Speech disorder developmental [Unknown]
  - Nasal disorder [Unknown]
  - Pharyngeal disorder [Unknown]
  - Ear disorder [Unknown]
  - Ear infection [Unknown]
  - Fatigue [Unknown]
  - Developmental coordination disorder [Unknown]
  - Balance disorder [Unknown]
  - Memory impairment [Unknown]
  - Fine motor skill dysfunction [Unknown]
  - Lordosis [Unknown]
  - Kyphosis [Unknown]
  - Congenital flat feet [Unknown]
  - Limb hypoplasia congenital [Unknown]
  - Educational problem [Unknown]
  - Language disorder [Unknown]
  - Cyanosis neonatal [Unknown]
  - Otitis media [Unknown]
  - Learning disorder [Unknown]
  - Limb malformation [Unknown]
  - Disturbance in attention [Unknown]
  - Bronchitis [Unknown]
  - Aggression [Unknown]
  - Irritability [Unknown]
  - Foetal exposure during pregnancy [Unknown]

NARRATIVE: CASE EVENT DATE: 20060201
